FAERS Safety Report 9735099 (Version 1)
Quarter: 2013Q4

REPORT INFORMATION
  Report Type: Spontaneous
  Country: JP (occurrence: None)
  Receive Date: 20131204
  Receipt Date: 20131204
  Transmission Date: 20140711
  Serious: Yes (Hospitalization)
  Sender: FDA-Public Use
  Company Number: FK201305168

PATIENT
  Age: 27 Year
  Sex: Female

DRUGS (2)
  1. PACLITAXEL [Suspect]
     Indication: BREAST CANCER STAGE IV
     Dosage: 80 MG/M2
  2. TRASTUZUMAB [Suspect]
     Indication: BREAST CANCER STAGE IV

REACTIONS (14)
  - Tumour haemorrhage [None]
  - Drug resistance [None]
  - Breast cancer stage IV [None]
  - Malignant neoplasm progression [None]
  - Decreased appetite [None]
  - Pleural effusion [None]
  - Skin erosion [None]
  - Tumour necrosis [None]
  - Skin necrosis [None]
  - Pain [None]
  - Impaired healing [None]
  - Cardio-respiratory arrest [None]
  - Respiratory failure [None]
  - Lymphangiosis carcinomatosa [None]
